FAERS Safety Report 14164603 (Version 2)
Quarter: 2017Q4

REPORT INFORMATION
  Report Type: Spontaneous
  Country: US (occurrence: US)
  Receive Date: 20171107
  Receipt Date: 20171110
  Transmission Date: 20180321
  Serious: No
  Sender: FDA-Public Use
  Company Number: US-PFIZER INC-2017399324

PATIENT
  Age: 80 Year
  Sex: Male
  Weight: 85 kg

DRUGS (5)
  1. METOPROLOL TARTRATE. [Suspect]
     Active Substance: METOPROLOL TARTRATE
     Indication: BLOOD PRESSURE ABNORMAL
     Dosage: 75 MG, 2X/DAY
     Route: 048
     Dates: end: 201701
  2. METOPROLOL TARTRATE. [Suspect]
     Active Substance: METOPROLOL TARTRATE
     Indication: HEART RATE ABNORMAL
  3. VIAGRA [Concomitant]
     Active Substance: SILDENAFIL CITRATE
  4. LEVITRA [Concomitant]
     Active Substance: VARDENAFIL HYDROCHLORIDE TRIHYDRATE
  5. CIALIS [Concomitant]
     Active Substance: TADALAFIL

REACTIONS (1)
  - Erectile dysfunction [Unknown]
